FAERS Safety Report 16825990 (Version 1)
Quarter: 2019Q3

REPORT INFORMATION
  Report Type: Spontaneous
  Country: IT (occurrence: IT)
  Receive Date: 20190919
  Receipt Date: 20190919
  Transmission Date: 20191005
  Serious: Yes (Hospitalization, Other)
  Sender: FDA-Public Use
  Company Number: IT-ALKEM LABORATORIES LIMITED-IT-ALKEM-2019-05868

PATIENT
  Age: 43 Year
  Sex: Female

DRUGS (9)
  1. CAPECITABINE. [Suspect]
     Active Substance: CAPECITABINE
     Indication: METASTASES TO LIVER
     Dosage: 1000 MILLIGRAM/SQ. METER, QD, FROM DAY 1 TO DAY 14, EVERY 21 DAYS
     Route: 048
     Dates: start: 20100301
  2. DOXORUBICIN [Concomitant]
     Active Substance: DOXORUBICIN
     Indication: INVASIVE DUCTAL BREAST CARCINOMA
     Dosage: 60 MILLIGRAM/SQ. METER FOUR CYCLES
     Route: 042
  3. LAPATINIB [Concomitant]
     Active Substance: LAPATINIB
     Indication: METASTASES TO BONE
  4. CAPECITABINE. [Suspect]
     Active Substance: CAPECITABINE
     Indication: METASTASES TO BONE
  5. EXEMESTANE. [Concomitant]
     Active Substance: EXEMESTANE
     Indication: INVASIVE DUCTAL BREAST CARCINOMA
     Dosage: 25 MILLIGRAM, QD
     Route: 048
  6. CAPECITABINE. [Suspect]
     Active Substance: CAPECITABINE
     Indication: INVASIVE DUCTAL BREAST CARCINOMA
     Dosage: 1850 MILLIGRAM/SQ. METER, DIVIDED DOSES FROM DAY 1 TO 14 AT 3-WEEK INTERVALS
     Route: 048
     Dates: start: 200611
  7. CYCLOPHOSPHAMIDE. [Concomitant]
     Active Substance: CYCLOPHOSPHAMIDE
     Indication: INVASIVE DUCTAL BREAST CARCINOMA
     Dosage: 600 MILLIGRAM/SQ. METER, AT 3-WEEK INTERVALS
     Route: 042
  8. PACLITAXEL. [Concomitant]
     Active Substance: PACLITAXEL
     Indication: INVASIVE DUCTAL BREAST CARCINOMA
     Dosage: 100 MILLIGRAM/SQ. METER, ON DAYS 1 AND 8 FOUR CYCLES
     Route: 042
     Dates: start: 200611
  9. LAPATINIB [Concomitant]
     Active Substance: LAPATINIB
     Indication: METASTASES TO LIVER
     Dosage: 1250 MILLIGRAM, QD
     Route: 065
     Dates: start: 20100301

REACTIONS (1)
  - Cardiotoxicity [Unknown]
